FAERS Safety Report 9366269 (Version 1)
Quarter: 2013Q2

REPORT INFORMATION
  Report Type: Spontaneous
  Country: US (occurrence: US)
  Receive Date: 20130625
  Receipt Date: 20130625
  Transmission Date: 20140414
  Serious: No
  Sender: FDA-Public Use
  Company Number: US-GLAXOSMITHKLINE-A0978635A

PATIENT
  Sex: Male

DRUGS (3)
  1. VERAMYST [Suspect]
     Route: 045
  2. FLONASE [Suspect]
     Route: 045
  3. NASONEX [Suspect]
     Route: 045

REACTIONS (2)
  - Therapeutic response unexpected [Unknown]
  - Drug ineffective [Unknown]
